FAERS Safety Report 7139232-0 (Version None)
Quarter: 2010Q4

REPORT INFORMATION
  Report Type: 
  Country: None (occurrence: None)
  Receive Date: 20101206
  Receipt Date: 20101123
  Transmission Date: 20110411
  Serious: Yes (Hospitalization, Other)
  Sender: FDA-Public Use
  Company Number: US-ROCHE-724616

PATIENT
  Sex: Male
  Weight: 90.7 kg

DRUGS (6)
  1. ACCUTANE [Suspect]
     Indication: ACNE
     Route: 048
     Dates: start: 20031029, end: 20031128
  2. ACCUTANE [Suspect]
     Route: 048
     Dates: start: 20031101, end: 20040201
  3. CLARAVIS [Suspect]
     Indication: ACNE
     Route: 048
     Dates: start: 20031126, end: 20040422
  4. AMNESTEEM [Suspect]
     Route: 065
     Dates: end: 20040401
  5. DICYCLOMINE [Concomitant]
     Route: 048
     Dates: start: 20030808
  6. AMOXICILLIN [Concomitant]
     Route: 048
     Dates: start: 20020819

REACTIONS (12)
  - ALANINE AMINOTRANSFERASE INCREASED [None]
  - ANXIETY [None]
  - ASPARTATE AMINOTRANSFERASE INCREASED [None]
  - BLOOD CHOLESTEROL INCREASED [None]
  - BLOOD TRIGLYCERIDES INCREASED [None]
  - CHEILITIS [None]
  - COLITIS ULCERATIVE [None]
  - CROHN'S DISEASE [None]
  - DEPRESSION [None]
  - HAEMORRHOIDS [None]
  - INFLAMMATORY BOWEL DISEASE [None]
  - PROCTITIS [None]
